FAERS Safety Report 18276143 (Version 1)
Quarter: 2020Q3

REPORT INFORMATION
  Report Type: Report from Study
  Country: US (occurrence: US)
  Receive Date: 20200916
  Receipt Date: 20200916
  Transmission Date: 20201103
  Serious: Yes (Death, Hospitalization, Other)
  Sender: FDA-Public Use
  Company Number: US-BRISTOL-MYERS SQUIBB COMPANY-BMS-2020-069571

PATIENT
  Age: 73 Year
  Sex: Female
  Weight: 69.84 kg

DRUGS (6)
  1. PACLITAXEL. [Suspect]
     Active Substance: PACLITAXEL
     Indication: MALIGNANT MELANOMA
     Dosage: UNK
     Route: 065
     Dates: start: 20200827
  2. IPILIMUMAB [Suspect]
     Active Substance: IPILIMUMAB
     Indication: MALIGNANT MELANOMA
     Dosage: 69.9 MILLIGRAM, Q3WK
     Route: 042
     Dates: start: 20200625, end: 20200806
  3. NIVOLUMAB [Suspect]
     Active Substance: NIVOLUMAB
     Indication: MALIGNANT MELANOMA
     Dosage: 209.7 MILLIGRAM, Q3WK
     Route: 042
     Dates: start: 20200625, end: 20200806
  4. BEVACIZUMAB. [Suspect]
     Active Substance: BEVACIZUMAB
     Indication: MALIGNANT MELANOMA
     Dosage: UNK
     Route: 065
     Dates: start: 20200827
  5. TOCILIZUMAB. [Suspect]
     Active Substance: TOCILIZUMAB
     Indication: MALIGNANT MELANOMA
     Dosage: 279.6 MILLIGRAM, Q3WK
     Route: 042
     Dates: start: 20200625, end: 20200806
  6. CARBOPLATIN. [Suspect]
     Active Substance: CARBOPLATIN
     Indication: MALIGNANT MELANOMA
     Dosage: UNK
     Route: 065
     Dates: start: 20200827

REACTIONS (8)
  - Neutropenia [Unknown]
  - Asthenia [Not Recovered/Not Resolved]
  - Septic shock [Unknown]
  - Necrotising fasciitis [Unknown]
  - Cellulitis [Unknown]
  - Enterococcal bacteraemia [Unknown]
  - Death [Fatal]
  - Muscular weakness [Unknown]

NARRATIVE: CASE EVENT DATE: 20200824
